FAERS Safety Report 20391231 (Version 1)
Quarter: 2022Q1

REPORT INFORMATION
  Report Type: Spontaneous
  Country: IT (occurrence: IT)
  Receive Date: 20220128
  Receipt Date: 20220128
  Transmission Date: 20220423
  Serious: No
  Sender: FDA-Public Use
  Company Number: IT-LUPIN PHARMACEUTICALS INC.-2022-01121

PATIENT
  Age: 32 Year
  Sex: Female

DRUGS (1)
  1. NADOLOL [Suspect]
     Active Substance: NADOLOL
     Indication: Mitral valve prolapse
     Dosage: 20 MILLIGRAM
     Route: 065

REACTIONS (2)
  - Hypotension [Unknown]
  - Presyncope [Unknown]
